FAERS Safety Report 24432649 (Version 3)
Quarter: 2025Q1

REPORT INFORMATION
  Report Type: Spontaneous
  Country: IN (occurrence: IN)
  Receive Date: 20241014
  Receipt Date: 20250129
  Transmission Date: 20250408
  Serious: Yes (Hospitalization)
  Sender: PFIZER
  Company Number: IN-PFIZER INC-PV202400087897

PATIENT
  Age: 49 Year
  Sex: Male
  Weight: 76.5 kg

DRUGS (5)
  1. LORLATINIB [Suspect]
     Active Substance: LORLATINIB
     Indication: Lung neoplasm malignant
     Dosage: 100 MG, 1X/DAY
     Route: 048
     Dates: start: 20240510
  2. LORLATINIB [Suspect]
     Active Substance: LORLATINIB
     Dosage: 75 MG, 1X/DAY
     Route: 048
  3. DENOSUMAB [Concomitant]
     Active Substance: DENOSUMAB
     Route: 058
  4. CALCIUM\CHOLECALCIFEROL [Concomitant]
     Active Substance: CALCIUM\CHOLECALCIFEROL
     Dosage: 500 MG, 1X/DAY (FOR 1 MONTH)
  5. ROSUVAS F [Concomitant]
     Dosage: 10 MG, 1X/DAY (AT BEDTIME)

REACTIONS (3)
  - Asthenia [Recovering/Resolving]
  - Liver function test abnormal [Recovering/Resolving]
  - Lipids abnormal [Unknown]

NARRATIVE: CASE EVENT DATE: 20240101
